FAERS Safety Report 10081039 (Version 2)
Quarter: 2014Q2

REPORT INFORMATION
  Report Type: Spontaneous
  Country: US (occurrence: US)
  Receive Date: 20140416
  Receipt Date: 20140428
  Transmission Date: 20141212
  Serious: No
  Sender: FDA-Public Use
  Company Number: US-PFIZER INC-2014102498

PATIENT
  Age: 67 Year
  Sex: Female
  Weight: 82.09 kg

DRUGS (2)
  1. LYRICA [Suspect]
     Indication: FIBROMYALGIA
     Dosage: 100 MG, 3X/DAY
     Dates: end: 201403
  2. CYMBALTA [Concomitant]
     Indication: ARTHRITIS
     Dosage: 30 MG, 2X/DAY

REACTIONS (4)
  - Drug withdrawal syndrome [Unknown]
  - Somnolence [Unknown]
  - Dizziness [Unknown]
  - Fibromyalgia [Unknown]
